FAERS Safety Report 4307534-9 (Version None)
Quarter: 2004Q1

REPORT INFORMATION
  Report Type: 
  Country: None (occurrence: None)
  Receive Date: 20040226
  Receipt Date: 20040218
  Transmission Date: 20041129
  Serious: Yes (Hospitalization)
  Sender: FDA-Public Use
  Company Number: 2004CG00166

PATIENT
  Age: 77 Year
  Sex: Male
  Weight: 104 kg

DRUGS (5)
  1. ATACAND [Suspect]
     Dosage: 16 MG DAILY PO
     Route: 048
     Dates: end: 20031121
  2. LASIX [Suspect]
     Dosage: 60 MG DAILY PO
     Route: 048
     Dates: end: 20031121
  3. INFLUVAC [Suspect]
     Dates: start: 20031110, end: 20031110
  4. GINKOR [Suspect]
     Dosage: 30 MG BID PO
     Route: 048
     Dates: end: 20031121
  5. ALLOPURINOL ^GNR^ [Concomitant]

REACTIONS (7)
  - ANOREXIA [None]
  - DYSPEPSIA [None]
  - HEADACHE [None]
  - NAUSEA [None]
  - RENAL FAILURE ACUTE [None]
  - RENAL VASCULITIS [None]
  - WEIGHT DECREASED [None]
